FAERS Safety Report 6707084-6 (Version None)
Quarter: 2010Q2

REPORT INFORMATION
  Report Type: 
  Country: None (occurrence: None)
  Receive Date: 20100503
  Receipt Date: 20100426
  Transmission Date: 20101027
  Serious: Yes (Death, Life-Threatening, Hospitalization, Disabling, Other)
  Sender: FDA-Public Use
  Company Number: A0815397A

PATIENT
  Age: 86 Year
  Sex: Male

DRUGS (2)
  1. PROMACTA [Suspect]
     Indication: DRUG USE FOR UNKNOWN INDICATION
     Dosage: 75MG PER DAY
     Route: 048
     Dates: start: 20090101
  2. NO CONCURRENT MEDICATION [Concomitant]

REACTIONS (3)
  - INFECTION [None]
  - LEUKOCYTOSIS [None]
  - PNEUMONIA [None]
